FAERS Safety Report 9773486 (Version 2)
Quarter: 2014Q3

REPORT INFORMATION
  Report Type: Spontaneous
  Country: US (occurrence: US)
  Receive Date: 20131219
  Receipt Date: 20140819
  Transmission Date: 20150326
  Serious: Yes (Hospitalization, Other)
  Sender: FDA-Public Use
  Company Number: US-009507513-1312USA008417

PATIENT
  Sex: Female

DRUGS (1)
  1. NUVARING [Suspect]
     Active Substance: ETHINYL ESTRADIOL\ETONOGESTREL
     Indication: PRODUCT USED FOR UNKNOWN INDICATION
     Dosage: UNK
     Route: 067
     Dates: start: 201210

REACTIONS (4)
  - Nephrectomy [Unknown]
  - Acne [Unknown]
  - Cerebrovascular accident [Recovered/Resolved]
  - Renal failure acute [Unknown]

NARRATIVE: CASE EVENT DATE: 20120307
